FAERS Safety Report 16058447 (Version 3)
Quarter: 2019Q1

REPORT INFORMATION
  Report Type: Spontaneous
  Country: JP (occurrence: JP)
  Receive Date: 20190311
  Receipt Date: 20190321
  Transmission Date: 20190418
  Serious: No
  Sender: FDA-Public Use
  Company Number: JP-JNJFOC-20190305060

PATIENT
  Age: 5 Decade
  Sex: Male

DRUGS (2)
  1. XEPLION [Suspect]
     Active Substance: PALIPERIDONE PALMITATE
     Indication: SCHIZOPHRENIA
     Route: 030
     Dates: start: 20180824
  2. LONASEN [Suspect]
     Active Substance: BLONANSERIN
     Indication: SCHIZOPHRENIA
     Route: 048
     Dates: start: 20190215, end: 2019

REACTIONS (1)
  - Oedema peripheral [Recovered/Resolved]

NARRATIVE: CASE EVENT DATE: 20190301
